FAERS Safety Report 7394247-2 (Version None)
Quarter: 2011Q1

REPORT INFORMATION
  Report Type: 
  Country: None (occurrence: None)
  Receive Date: 20110324
  Receipt Date: 20110308
  Transmission Date: 20110831
  Serious: Yes (Other)
  Sender: FDA-Public Use
  Company Number: 2011SP010754

PATIENT
  Age: 48 Year
  Sex: Female
  Weight: 56 kg

DRUGS (5)
  1. PEG-INTRON [Suspect]
     Indication: HEPATITIS C
     Dosage: 80 MCG;QW;SC
     Route: 058
     Dates: start: 20100601
  2. FOSTER [Concomitant]
  3. L-POLAMIDON [Concomitant]
  4. METHADON [Concomitant]
  5. REBETOL [Suspect]
     Indication: HEPATITIS C
     Dosage: 800 MG;QD
     Dates: start: 20100601

REACTIONS (2)
  - GENERAL PHYSICAL HEALTH DETERIORATION [None]
  - BREAST CANCER FEMALE [None]
